FAERS Safety Report 9872996 (Version 2)
Quarter: 2014Q1

REPORT INFORMATION
  Report Type: Other
  Country: US (occurrence: US)
  Receive Date: 20140206
  Receipt Date: 20140206
  Transmission Date: 20141002
  Serious: No
  Sender: FDA-Public Use
  Company Number: US-ACORDA-ACO_23176_2010

PATIENT
  Age: 60 Year
  Sex: Male
  Weight: 85 kg

DRUGS (16)
  1. AMPYRA [Suspect]
     Indication: MULTIPLE SCLEROSIS
     Dosage: 10 MG, BID
     Route: 048
     Dates: start: 20100429, end: 20100521
  2. AMPYRA [Suspect]
     Indication: GAIT DISTURBANCE
     Dosage: 10 MG, BID
     Dates: start: 20130731
  3. LIPITOR [Concomitant]
     Dosage: DF
     Dates: start: 2000
  4. FOSAMAX [Concomitant]
     Indication: OSTEOPOROSIS
     Dosage: DF
     Dates: start: 200811
  5. BACLOFEN [Concomitant]
     Indication: PRODUCT USED FOR UNKNOWN INDICATION
     Dosage: DF
     Dates: start: 2000
  6. AMANTADINE [Concomitant]
     Indication: PRODUCT USED FOR UNKNOWN INDICATION
     Dosage: DF
     Dates: start: 2000
  7. CARVEDILOL [Concomitant]
     Dosage: DF
     Dates: start: 201003
  8. SOLUMEDROL INJECTION [Concomitant]
     Dosage: DF
     Dates: start: 2004, end: 200811
  9. SOLUMEDROL TABLETS [Concomitant]
     Dosage: DF
     Dates: start: 200811
  10. BETASERON [Concomitant]
     Dosage: DF
     Dates: start: 1997
  11. GILENYA [Concomitant]
     Indication: PRODUCT USED FOR UNKNOWN INDICATION
     Dosage: UNK
  12. BYSTOLIC [Concomitant]
     Indication: PRODUCT USED FOR UNKNOWN INDICATION
     Dosage: UNK
  13. MULTIVITAMINS [Concomitant]
     Indication: PRODUCT USED FOR UNKNOWN INDICATION
     Dosage: UNK
  14. VITAMIN B-COMPLEX [Concomitant]
     Indication: PRODUCT USED FOR UNKNOWN INDICATION
     Dosage: UNK
  15. CALCIUM [Concomitant]
     Indication: PRODUCT USED FOR UNKNOWN INDICATION
     Dosage: UNK
  16. ATORVASTATIN [Concomitant]
     Indication: PRODUCT USED FOR UNKNOWN INDICATION
     Dosage: UNK

REACTIONS (5)
  - Hypoaesthesia [Recovering/Resolving]
  - Muscular weakness [Unknown]
  - Insomnia [Unknown]
  - Paraesthesia [Recovering/Resolving]
  - Dizziness [Unknown]
